FAERS Safety Report 16982629 (Version 1)
Quarter: 2019Q4

REPORT INFORMATION
  Report Type: Spontaneous
  Country: US (occurrence: US)
  Receive Date: 20191101
  Receipt Date: 20191101
  Transmission Date: 20200122
  Serious: No
  Sender: FDA-Public Use
  Company Number: US-CIPLA LTD.-2019US03898

PATIENT

DRUGS (7)
  1. CILOSTAZOL. [Concomitant]
     Active Substance: CILOSTAZOL
     Indication: HYPERTENSION
     Dosage: 100 MILLIGRAM, BID
     Route: 065
     Dates: start: 2009
  2. AMLODIPINE [Concomitant]
     Active Substance: AMLODIPINE BESYLATE
     Indication: HYPERTENSION
     Dosage: 10 MILLIGRAM, QD
     Route: 065
     Dates: start: 2009
  3. ASPIRIN                            /00002701/ [Concomitant]
     Active Substance: ASPIRIN
     Indication: CARDIAC DISORDER
     Dosage: 1 MILLIGRAM
     Route: 065
     Dates: start: 2009
  4. TRAMADOL. [Concomitant]
     Active Substance: TRAMADOL
     Indication: PAIN
     Dosage: UNK, QD
     Route: 065
     Dates: start: 20190501
  5. GABAPENTIN. [Suspect]
     Active Substance: GABAPENTIN
     Indication: PAIN
  6. GABAPENTIN. [Suspect]
     Active Substance: GABAPENTIN
     Indication: SLEEP DISORDER
     Dosage: 2 DOSAGE FORM, QD (AT NIGHT)
     Route: 048
     Dates: start: 20190506
  7. METOPROLOL. [Concomitant]
     Active Substance: METOPROLOL
     Indication: HYPERTENSION
     Dosage: 100 MILLIGRAM, QD
     Route: 065
     Dates: start: 2009

REACTIONS (5)
  - Musculoskeletal pain [Not Recovered/Not Resolved]
  - Product use in unapproved indication [Unknown]
  - Muscle spasms [Not Recovered/Not Resolved]
  - Off label use [Unknown]
  - Pain in jaw [Not Recovered/Not Resolved]

NARRATIVE: CASE EVENT DATE: 20190506
